FAERS Safety Report 13121203 (Version 1)
Quarter: 2017Q1

REPORT INFORMATION
  Report Type: Spontaneous
  Country: DE (occurrence: DE)
  Receive Date: 20170117
  Receipt Date: 20170117
  Transmission Date: 20170428
  Serious: Yes (Other)
  Sender: FDA-Public Use
  Company Number: DE-BAYER-2017-008478

PATIENT
  Sex: Male
  Weight: 75 kg

DRUGS (3)
  1. FALITHROM [Concomitant]
     Active Substance: PHENPROCOUMON
     Dosage: UNK
  2. ADEMPAS [Suspect]
     Active Substance: RIOCIGUAT
     Indication: PULMONARY HYPERTENSION
     Dosage: 1.5 MG, TID
     Route: 048
     Dates: start: 20161125
  3. DIGOXIN. [Concomitant]
     Active Substance: DIGOXIN
     Dosage: UNK

REACTIONS (5)
  - Prothrombin time prolonged [Not Recovered/Not Resolved]
  - Alopecia [None]
  - Peripheral coldness [None]
  - Feeling cold [None]
  - Fatigue [None]

NARRATIVE: CASE EVENT DATE: 20170105
